FAERS Safety Report 19483242 (Version 2)
Quarter: 2021Q3

REPORT INFORMATION
  Report Type: Spontaneous
  Country: US (occurrence: US)
  Receive Date: 20210701
  Receipt Date: 20210813
  Transmission Date: 20211014
  Serious: Yes (Hospitalization, Other)
  Sender: FDA-Public Use
  Company Number: US-TEVA-2021-US-1927408

PATIENT
  Sex: Male

DRUGS (2)
  1. PROCAINAMIDE HYDROCHLORIDE. [Suspect]
     Active Substance: PROCAINAMIDE HYDROCHLORIDE
     Indication: ELECTROCARDIOGRAM ABNORMAL
     Route: 065
  2. AMIODARONE [Suspect]
     Active Substance: AMIODARONE
     Indication: ELECTROCARDIOGRAM ABNORMAL
     Route: 065

REACTIONS (6)
  - Lung disorder [Recovered/Resolved]
  - Seizure [Unknown]
  - Tremor [Unknown]
  - Thyroid disorder [Recovered/Resolved]
  - Influenza like illness [Unknown]
  - Liver disorder [Recovered/Resolved]
